FAERS Safety Report 7487094-4 (Version None)
Quarter: 2011Q2

REPORT INFORMATION
  Report Type: 
  Country: None (occurrence: None)
  Receive Date: 20110518
  Receipt Date: 20110513
  Transmission Date: 20111010
  Serious: Yes (Other)
  Sender: FDA-Public Use
  Company Number: US-ROCHE-766873

PATIENT
  Sex: Female

DRUGS (2)
  1. RIBASPHERE [Suspect]
     Indication: HEPATITIS C
     Dosage: IN DIVIDED DOSES
     Route: 065
     Dates: start: 20110209
  2. PEGINTERFERON ALFA-2A [Suspect]
     Indication: HEPATITIS C
     Route: 065
     Dates: start: 20110209

REACTIONS (18)
  - DYSPEPSIA [None]
  - HYPERHIDROSIS [None]
  - BACK PAIN [None]
  - ARTHRALGIA [None]
  - DYSPNOEA [None]
  - FATIGUE [None]
  - FAECES DISCOLOURED [None]
  - ASTHENIA [None]
  - DIZZINESS [None]
  - SENSATION OF HEAVINESS [None]
  - HAEMATOCHEZIA [None]
  - HAEMORRHAGE [None]
  - ABDOMINAL PAIN UPPER [None]
  - CHEST DISCOMFORT [None]
  - BRONCHITIS [None]
  - BLOOD GLUCOSE ABNORMAL [None]
  - ALOPECIA [None]
  - CHEST PAIN [None]
